FAERS Safety Report 21528072 (Version 1)
Quarter: 2022Q4

REPORT INFORMATION
  Report Type: Spontaneous
  Country: US (occurrence: US)
  Receive Date: 20221031
  Receipt Date: 20221031
  Transmission Date: 20230113
  Serious: No
  Sender: FDA-Public Use
  Company Number: US-RECKITT BENCKISER HEALTHCARE INT LIMITED-RB-091405-2022

PATIENT
  Age: 73 Year
  Sex: Female
  Weight: 59.09 kg

DRUGS (1)
  1. MUCINEX MAXIMUM STRENGTH [Suspect]
     Active Substance: GUAIFENESIN
     Indication: Product used for unknown indication
     Dosage: 1 DOSAGE FORM, SINGLE
     Route: 048
     Dates: start: 20220603

REACTIONS (3)
  - Dyspnoea [Not Recovered/Not Resolved]
  - Product complaint [Unknown]
  - Nausea [Not Recovered/Not Resolved]
